FAERS Safety Report 9854411 (Version 1)
Quarter: 2014Q1

REPORT INFORMATION
  Report Type: Spontaneous
  Country: US (occurrence: US)
  Receive Date: 20140130
  Receipt Date: 20140130
  Transmission Date: 20141002
  Serious: No
  Sender: FDA-Public Use
  Company Number: US-BIOGENIDEC-2014BI008364

PATIENT
  Sex: Female

DRUGS (1)
  1. AVONEX [Suspect]
     Indication: MULTIPLE SCLEROSIS
     Route: 030
     Dates: start: 20070831

REACTIONS (13)
  - Eye infection bacterial [Unknown]
  - Dry mouth [Unknown]
  - Dry eye [Unknown]
  - Decreased immune responsiveness [Unknown]
  - Raynaud^s phenomenon [Unknown]
  - Vein disorder [Unknown]
  - Musculoskeletal disorder [Unknown]
  - Cognitive disorder [Unknown]
  - Punctal plug insertion [Unknown]
  - Frustration [Unknown]
  - Sjogren^s syndrome [Unknown]
  - Fatigue [Unknown]
  - Influenza like illness [Unknown]
